FAERS Safety Report 5152080-6 (Version None)
Quarter: 2006Q4

REPORT INFORMATION
  Report Type: 
  Country: None (occurrence: None)
  Receive Date: 20061116
  Receipt Date: 20061108
  Transmission Date: 20070319
  Serious: Yes (Hospitalization)
  Sender: FDA-Public Use
  Company Number: DE-JNJFOC-20061003473

PATIENT
  Sex: Male
  Weight: 80 kg

DRUGS (18)
  1. REMICADE [Suspect]
     Indication: RHEUMATOID ARTHRITIS
     Route: 042
  2. ARAVA [Concomitant]
     Indication: RHEUMATOID ARTHRITIS
     Route: 065
     Dates: start: 19940201, end: 20060101
  3. DECORTIN [Concomitant]
     Dosage: MORNINGS
     Route: 065
     Dates: start: 19940201
  4. DECORTIN [Concomitant]
     Route: 065
     Dates: start: 19940201
  5. DECORTIN [Concomitant]
     Indication: RHEUMATOID ARTHRITIS
     Route: 065
     Dates: start: 19940201
  6. EREMFAT [Concomitant]
     Dosage: MORNINGS
     Route: 065
  7. PYRAFAT [Concomitant]
     Dosage: MORNINGS
     Route: 065
  8. MIRTAZAPINE [Concomitant]
     Dosage: EVENINGS
     Route: 065
  9. CALCIMAGON D3 [Concomitant]
     Dosage: MIDDAY
     Route: 065
  10. VOLTAREN [Concomitant]
     Route: 065
  11. OXYGESIC [Concomitant]
     Dosage: 2 EVERY MORNING, 1 IN THE EVENING
  12. LEVOTHYROXINE SODIUM [Concomitant]
     Dosage: MORNINGS
     Route: 065
  13. TEGRETOL [Concomitant]
     Dosage: 1 IN THE MORNING, HALF A DOSE AT MIDDAY, 1 IN THE EVENING
     Route: 065
  14. SIMVABETA [Concomitant]
     Dosage: EVENINGS
     Route: 065
  15. ASPIRIN [Concomitant]
     Dosage: MORNINGS
     Route: 065
  16. TEVETEN [Concomitant]
     Dosage: 600/12.5 EVERY MORNING
     Route: 065
  17. OMNIC [Concomitant]
     Dosage: AT MIDDAY
     Route: 065
  18. NEXIUM [Concomitant]
     Dosage: 0.5 DOSES EVERY MORNING
     Route: 065

REACTIONS (5)
  - ALANINE AMINOTRANSFERASE INCREASED [None]
  - DEPRESSION [None]
  - DIARRHOEA [None]
  - GAMMA-GLUTAMYLTRANSFERASE INCREASED [None]
  - PULMONARY TUBERCULOSIS [None]
